FAERS Safety Report 9452689 (Version 1)
Quarter: 2013Q3

REPORT INFORMATION
  Report Type: Report from Study
  Country: US (occurrence: US)
  Receive Date: 20130812
  Receipt Date: 20130812
  Transmission Date: 20140515
  Serious: Yes (Other)
  Sender: FDA-Public Use
  Company Number: US-BAYER-2013-092988

PATIENT
  Sex: Female

DRUGS (5)
  1. DACARBAZINE [Suspect]
     Indication: MALIGNANT MELANOMA
     Dosage: 250 MG/M2, OW
     Route: 042
  2. DACARBAZINE [Suspect]
     Indication: MALIGNANT MELANOMA
     Dosage: DOSE ESCALATION
     Route: 042
  3. DACARBAZINE [Suspect]
     Indication: MALIGNANT MELANOMA
     Dosage: 580 MG/M2, OW  (HIGH DOSE)
     Route: 042
  4. DACARBAZINE [Suspect]
     Indication: MALIGNANT MELANOMA
     Dosage: FOUR DOSE REDUCTIONS
     Route: 042
  5. BORTEZOMIB [Suspect]
     Indication: MALIGNANT MELANOMA
     Dosage: 1.6 MG/M2, OW, IV PUSH OVER 3 TO 5 S
     Route: 042

REACTIONS (2)
  - Bone marrow failure [None]
  - Atypical mycobacterial pneumonia [None]
